FAERS Safety Report 9408962 (Version 1)
Quarter: 2013Q3

REPORT INFORMATION
  Report Type: Spontaneous
  Country: US (occurrence: US)
  Receive Date: 20130719
  Receipt Date: 20130719
  Transmission Date: 20140515
  Serious: Yes (Hospitalization)
  Sender: FDA-Public Use
  Company Number: US-BRISTOL-MYERS SQUIBB COMPANY-19092196

PATIENT
  Age: 64 Year
  Sex: Male
  Weight: 140.59 kg

DRUGS (2)
  1. COUMADIN [Suspect]
  2. LANTUS [Concomitant]

REACTIONS (3)
  - Haemorrhage [Unknown]
  - Pulmonary thrombosis [Unknown]
  - Sleep apnoea syndrome [Unknown]
